FAERS Safety Report 15108983 (Version 2)
Quarter: 2018Q3

REPORT INFORMATION
  Report Type: Report from Study
  Country: IT (occurrence: IT)
  Receive Date: 20180705
  Receipt Date: 20180712
  Transmission Date: 20181010
  Serious: Yes (Hospitalization)
  Sender: FDA-Public Use
  Company Number: IT-TEVA-2018-IT-919289

PATIENT
  Age: 29 Year
  Sex: Male

DRUGS (4)
  1. EFEXOR 150 MG CAPSULE RIGIDE A RILASCIO PROLUNGATO [Suspect]
     Active Substance: VENLAFAXINE HYDROCHLORIDE
     Route: 048
     Dates: start: 20161108, end: 20161109
  2. OLANZAPINE. [Suspect]
     Active Substance: OLANZAPINE
     Route: 048
     Dates: start: 20161108, end: 20161109
  3. DEPAKIN CHRONO 300 MG COMPRESSE A RILASCIO PROLUNGATO [Suspect]
     Active Substance: VALPROIC ACID
     Route: 048
     Dates: start: 20161108, end: 20161109
  4. NIMESULIDE [Suspect]
     Active Substance: NIMESULIDE
     Route: 048
     Dates: start: 20161108, end: 20161109

REACTIONS (5)
  - Mydriasis [Recovered/Resolved]
  - Drug abuse [Recovered/Resolved]
  - Agitation [Recovered/Resolved]
  - Sopor [Recovered/Resolved]
  - Dyskinesia [Recovered/Resolved]

NARRATIVE: CASE EVENT DATE: 20161109
